FAERS Safety Report 8998428 (Version 1)
Quarter: 2013Q1

REPORT INFORMATION
  Report Type: Report from Study
  Country: DE (occurrence: DE)
  Receive Date: 20130103
  Receipt Date: 20130103
  Transmission Date: 20140127
  Serious: Yes (Hospitalization)
  Sender: FDA-Public Use
  Company Number: DE-BAXTER-2012BAX028480

PATIENT
  Age: 80 Year
  Sex: Female
  Weight: 60 kg

DRUGS (4)
  1. ENDOXAN 1G [Suspect]
     Indication: BREAST CANCER
     Route: 042
     Dates: start: 20111116
  2. ENDOXAN 1G [Suspect]
     Route: 042
     Dates: start: 20111228
  3. EPIRUBICIN HYDROCHLORIDE [Suspect]
     Indication: BREAST CANCER
     Route: 042
     Dates: start: 20111116
  4. EPIRUBICIN HYDROCHLORIDE [Suspect]
     Route: 042
     Dates: start: 20111228

REACTIONS (1)
  - General physical health deterioration [Recovered/Resolved]
